FAERS Safety Report 20126603 (Version 3)
Quarter: 2022Q2

REPORT INFORMATION
  Report Type: Report from Study
  Country: US (occurrence: US)
  Receive Date: 20211129
  Receipt Date: 20220613
  Transmission Date: 20220721
  Serious: Yes (Hospitalization, Other)
  Sender: FDA-Public Use
  Company Number: US-TAKEDA-US201932320

PATIENT
  Sex: Female

DRUGS (1)
  1. HUMAN IMMUNOGLOBULIN G [Suspect]
     Active Substance: HUMAN IMMUNOGLOBULIN G
     Indication: Immunodeficiency common variable
     Dosage: UNK
     Route: 042

REACTIONS (7)
  - Thrombosis [Unknown]
  - Clostridium difficile infection [Unknown]
  - COVID-19 [Unknown]
  - Lung transplant [Recovering/Resolving]
  - Pneumonia [Unknown]
  - Lung transplant rejection [Unknown]
  - Asthma [Unknown]
